FAERS Safety Report 12861976 (Version 2)
Quarter: 2016Q4

REPORT INFORMATION
  Report Type: Report from Study
  Country: US (occurrence: US)
  Receive Date: 20161019
  Receipt Date: 20161122
  Transmission Date: 20170207
  Serious: Yes (Hospitalization, Disabling, Other)
  Sender: FDA-Public Use
  Company Number: US-REGENERON PHARMACEUTICALS, INC.-2016-22743

PATIENT

DRUGS (1)
  1. EYLEA [Suspect]
     Active Substance: AFLIBERCEPT
     Indication: DIABETIC RETINAL OEDEMA
     Dosage: EVERY 5-7 WEEKS

REACTIONS (6)
  - Feeling abnormal [Unknown]
  - Weight bearing difficulty [Not Recovered/Not Resolved]
  - Lower limb fracture [Unknown]
  - Road traffic accident [Unknown]
  - Tibia fracture [Unknown]
  - Dialysis [Unknown]

NARRATIVE: CASE EVENT DATE: 20161010
